FAERS Safety Report 15814685 (Version 2)
Quarter: 2019Q1

REPORT INFORMATION
  Report Type: Report from Study
  Country: None (occurrence: US)
  Receive Date: 20190111
  Receipt Date: 20190205
  Transmission Date: 20190417
  Serious: No
  Sender: FDA-Public Use
  Company Number: US-ABBVIE-19K-163-2616193-00

PATIENT
  Age: 37 Year
  Sex: Male
  Weight: 93.07 kg

DRUGS (2)
  1. FINASTERIDE. [Concomitant]
     Active Substance: FINASTERIDE
     Indication: ALOPECIA
  2. HUMIRA [Suspect]
     Active Substance: ADALIMUMAB
     Indication: ANKYLOSING SPONDYLITIS
     Route: 058
     Dates: start: 201809

REACTIONS (2)
  - Scar [Not Recovered/Not Resolved]
  - Neoplasm skin [Not Recovered/Not Resolved]

NARRATIVE: CASE EVENT DATE: 2018
